FAERS Safety Report 20483165 (Version 1)
Quarter: 2022Q1

REPORT INFORMATION
  Report Type: Spontaneous
  Country: BR (occurrence: BR)
  Receive Date: 20220217
  Receipt Date: 20220217
  Transmission Date: 20220424
  Serious: Yes (Hospitalization, Other)
  Sender: FDA-Public Use
  Company Number: BR-CIPLA LTD.-2022BR00803

PATIENT

DRUGS (12)
  1. DOXORUBICIN HYDROCHLORIDE [Suspect]
     Active Substance: DOXORUBICIN HYDROCHLORIDE
     Indication: Small cell carcinoma
     Dosage: 40 MILLIGRAM/SQ. METER, DAY 1, EVERY 3 WEEKS
     Route: 005
     Dates: start: 202005, end: 2020
  2. DOXORUBICIN HYDROCHLORIDE [Suspect]
     Active Substance: DOXORUBICIN HYDROCHLORIDE
     Indication: Ovarian calcification
  3. CARBOPLATIN [Suspect]
     Active Substance: CARBOPLATIN
     Indication: Small cell carcinoma
     Dosage: UNK
     Route: 065
     Dates: start: 202011
  4. CARBOPLATIN [Suspect]
     Active Substance: CARBOPLATIN
     Indication: Ovarian calcification
  5. CISPLATIN [Suspect]
     Active Substance: CISPLATIN
     Indication: Small cell carcinoma
     Dosage: 80 MILLIGRAM/SQ. METER, DAY 1, EVERY 3 WEEKS
     Route: 065
     Dates: start: 202005, end: 2020
  6. CISPLATIN [Suspect]
     Active Substance: CISPLATIN
     Indication: Ovarian calcification
  7. ETOPOSIDE [Suspect]
     Active Substance: ETOPOSIDE
     Indication: Small cell carcinoma
     Dosage: 75 MILLIGRAM/SQ. METER, DAYS 1?3, EVERY 3 WEEKS
     Route: 065
     Dates: start: 202005, end: 2020
  8. ETOPOSIDE [Suspect]
     Active Substance: ETOPOSIDE
     Indication: Ovarian calcification
  9. CYCLOPHOSPHAMIDE [Suspect]
     Active Substance: CYCLOPHOSPHAMIDE
     Indication: Ovarian calcification
     Dosage: 300 MILLIGRAM/SQ. METER DAYS 1?3, EVERY 3 WEEKS
     Route: 065
     Dates: start: 202005, end: 2020
  10. CYCLOPHOSPHAMIDE [Suspect]
     Active Substance: CYCLOPHOSPHAMIDE
     Indication: Small cell carcinoma
  11. PACLITAXEL [Suspect]
     Active Substance: PACLITAXEL
     Indication: Ovarian calcification
     Dosage: UNK
     Route: 065
     Dates: start: 202011
  12. PACLITAXEL [Suspect]
     Active Substance: PACLITAXEL
     Indication: Small cell carcinoma

REACTIONS (3)
  - Febrile neutropenia [Unknown]
  - Acute kidney injury [Unknown]
  - Nephropathy toxic [Unknown]

NARRATIVE: CASE EVENT DATE: 20200101
